FAERS Safety Report 6997669-4 (Version None)
Quarter: 2010Q3

REPORT INFORMATION
  Report Type: 
  Country: None (occurrence: None)
  Receive Date: 20100918
  Receipt Date: 20091111
  Transmission Date: 20110219
  Serious: No
  Sender: FDA-Public Use
  Company Number: US-WYE-H12175509

PATIENT
  Sex: Female

DRUGS (2)
  1. VENLAFAXINE HYDROCHLORIDE [Suspect]
     Indication: DEPRESSION
     Dosage: UNSPECIFIED DOSE
     Route: 048
     Dates: start: 20090101, end: 20090101
  2. VENLAFAXINE HYDROCHLORIDE [Suspect]
     Dosage: ^BEGAN CUTTING THEM AND WENT DOWN TO 6.25 MG BID^
     Route: 048
     Dates: start: 20090101

REACTIONS (5)
  - DIZZINESS [None]
  - DRUG INEFFECTIVE [None]
  - DRUG WITHDRAWAL SYNDROME [None]
  - EYE MOVEMENT DISORDER [None]
  - WEIGHT INCREASED [None]
